FAERS Safety Report 6822816-4 (Version None)
Quarter: 2010Q3

REPORT INFORMATION
  Report Type: 
  Country: None (occurrence: None)
  Receive Date: 20100708
  Receipt Date: 20100628
  Transmission Date: 20110219
  Serious: Yes (Death, Life-Threatening)
  Sender: FDA-Public Use
  Company Number: RU-JNJFOC-20100603680

PATIENT
  Sex: Female

DRUGS (5)
  1. REMICADE [Suspect]
     Indication: ERYTHRODERMIC PSORIASIS
     Route: 042
  2. ANTIHISTAMINES [Concomitant]
     Indication: PRURITUS
  3. PREDNISOLONE [Concomitant]
     Route: 048
  4. CORTICOSTEROIDS [Concomitant]
  5. UNKNOWN MEDICATION [Concomitant]

REACTIONS (2)
  - CIRCULATORY COLLAPSE [None]
  - MYCOSIS FUNGOIDES [None]
